FAERS Safety Report 7302129-7 (Version None)
Quarter: 2011Q1

REPORT INFORMATION
  Report Type: 
  Country: None (occurrence: None)
  Receive Date: 20110218
  Receipt Date: 20110210
  Transmission Date: 20110831
  Serious: Yes (Hospitalization)
  Sender: FDA-Public Use
  Company Number: FR-MERCK-1102FRA00087

PATIENT
  Age: 68 Year
  Sex: Male

DRUGS (5)
  1. ATENOLOL [Concomitant]
     Route: 048
  2. ZOCOR [Suspect]
     Indication: DYSLIPIDAEMIA
     Route: 048
     Dates: end: 20101201
  3. SERTACONAZOLE NITRATE [Concomitant]
     Route: 061
     Dates: start: 20101201
  4. PROPAFENONE HYDROCHLORIDE [Concomitant]
     Route: 048
  5. FUSIDATE SODIUM [Suspect]
     Indication: SKIN DISORDER
     Route: 048
     Dates: start: 20101201

REACTIONS (2)
  - DRUG RASH WITH EOSINOPHILIA AND SYSTEMIC SYMPTOMS [None]
  - DRUG INTERACTION [None]
